FAERS Safety Report 26001061 (Version 1)
Quarter: 2025Q4

REPORT INFORMATION
  Report Type: Spontaneous
  Country: US (occurrence: US)
  Receive Date: 20251105
  Receipt Date: 20251105
  Transmission Date: 20260117
  Serious: Yes (Hospitalization)
  Sender: OTSUKA
  Company Number: US-OTSUKA-2025_026792

PATIENT
  Age: 14 Year
  Sex: Female

DRUGS (6)
  1. ARIPIPRAZOLE [Suspect]
     Active Substance: ARIPIPRAZOLE
     Indication: Product used for unknown indication
     Dosage: UNK
     Route: 065
  2. SERTRALINE [Suspect]
     Active Substance: SERTRALINE HYDROCHLORIDE
     Indication: Product used for unknown indication
     Dosage: UNK
     Route: 065
  3. BENZTROPINE [Suspect]
     Active Substance: BENZTROPINE
     Indication: Product used for unknown indication
     Dosage: UNK
     Route: 065
  4. ACARBOSE [Concomitant]
     Active Substance: ACARBOSE
     Indication: Product used for unknown indication
     Dosage: UNK
     Route: 065
  5. DIPHENHYDRAMINE [Concomitant]
     Active Substance: DIPHENHYDRAMINE
     Indication: Product used for unknown indication
     Dosage: UNK
     Route: 065
  6. LORAZEPAM [Concomitant]
     Active Substance: LORAZEPAM
     Indication: Agitation
     Dosage: UNK
     Route: 065

REACTIONS (5)
  - Mydriasis [Unknown]
  - Mucosal dryness [Unknown]
  - Delirium [Unknown]
  - Tachycardia [Unknown]
  - Hypertension [Unknown]
